FAERS Safety Report 8544807 (Version 3)
Quarter: 2013Q2

REPORT INFORMATION
  Report Type: Spontaneous
  Country: US (occurrence: US)
  Receive Date: 20120503
  Receipt Date: 20130603
  Transmission Date: 20140414
  Serious: Yes (Hospitalization, Other)
  Sender: FDA-Public Use
  Company Number: US-PFIZER INC-2011233577

PATIENT
  Age: 56 Year
  Sex: Female
  Weight: 53.97 kg

DRUGS (3)
  1. EFFEXOR XR [Suspect]
     Indication: DEPRESSION
     Dosage: 150 MG DAILY
     Route: 048
     Dates: start: 2004, end: 201203
  2. EFFEXOR XR [Suspect]
     Dosage: 300 MG DAILY
     Route: 048
     Dates: start: 201203
  3. PROTONIX [Suspect]
     Indication: GASTROOESOPHAGEAL REFLUX DISEASE
     Dosage: 40 MG DAILY
     Dates: start: 2004

REACTIONS (4)
  - Anaemia [Recovering/Resolving]
  - Pneumonia [Recovered/Resolved]
  - Fluid retention [Recovering/Resolving]
  - Drug ineffective [Unknown]
